FAERS Safety Report 7342275-5 (Version None)
Quarter: 2011Q1

REPORT INFORMATION
  Report Type: 
  Country: None (occurrence: None)
  Receive Date: 20110310
  Receipt Date: 20091201
  Transmission Date: 20110831
  Serious: No
  Sender: FDA-Public Use
  Company Number: 2009BI039317

PATIENT
  Age: 35 Year
  Sex: Female

DRUGS (2)
  1. TYSABRI [Suspect]
     Indication: MULTIPLE SCLEROSIS
     Route: 042
     Dates: start: 20070120
  2. AVONEX [Concomitant]
     Indication: MULTIPLE SCLEROSIS
     Route: 030
     Dates: start: 20070101

REACTIONS (9)
  - GAIT DISTURBANCE [None]
  - HEART RATE INCREASED [None]
  - FATIGUE [None]
  - BALANCE DISORDER [None]
  - TOOTH FRACTURE [None]
  - IRRITABILITY [None]
  - LOOSE TOOTH [None]
  - DIZZINESS [None]
  - FEELING ABNORMAL [None]
